FAERS Safety Report 25317502 (Version 2)
Quarter: 2025Q4

REPORT INFORMATION
  Report Type: Spontaneous
  Country: US (occurrence: US)
  Receive Date: 20250515
  Receipt Date: 20251031
  Transmission Date: 20260117
  Serious: Yes (Hospitalization)
  Sender: TEVA
  Company Number: US-TEVA-VS-3329112

PATIENT
  Age: 35 Year
  Sex: Male

DRUGS (3)
  1. HYDROMORPHONE [Suspect]
     Active Substance: HYDROMORPHONE
     Indication: Pain management
     Dosage: PATIENT-CONTROLLED ANALGESIA
     Route: 065
  2. FENTANYL [Suspect]
     Active Substance: FENTANYL
     Indication: Pain management
     Route: 062
  3. NIFEDIPINE [Suspect]
     Active Substance: NIFEDIPINE
     Indication: Product used for unknown indication
     Dosage: OSMOTIC EXTENDED-RELEASE NIFEDIPINE
     Route: 065

REACTIONS (5)
  - Drug ineffective [Unknown]
  - Abdominal pain [Unknown]
  - Urethral pain [Unknown]
  - Product residue present [Unknown]
  - Dysuria [Unknown]
